FAERS Safety Report 9686464 (Version 2)
Quarter: 2013Q4

REPORT INFORMATION
  Report Type: Spontaneous
  Country: CA (occurrence: CA)
  Receive Date: 20131113
  Receipt Date: 20131113
  Transmission Date: 20140711
  Serious: Yes (Hospitalization, Other)
  Sender: FDA-Public Use
  Company Number: CA-BAXTER-2013BAX043619

PATIENT
  Age: 73 Year
  Sex: Male

DRUGS (3)
  1. DIANEAL PD4 SOLUTION WITH 1.5% DEXTROSE AND 2.5 MEQ/L CALCIUM [Suspect]
     Indication: PERITONEAL DIALYSIS
     Route: 033
  2. MORPHINE [Suspect]
     Indication: THERMAL BURN
  3. MORPHINE [Suspect]
     Indication: LOCALISED INFECTION

REACTIONS (7)
  - Balance disorder [Recovered/Resolved]
  - Thermal burn [Recovered/Resolved]
  - Localised infection [Recovered/Resolved]
  - Dizziness [Unknown]
  - Fall [Unknown]
  - Visual impairment [Recovered/Resolved]
  - Hallucination, visual [Recovered/Resolved]
